FAERS Safety Report 9808034 (Version 5)
Quarter: 2014Q2

REPORT INFORMATION
  Report Type: Spontaneous
  Country: US (occurrence: US)
  Receive Date: 20140110
  Receipt Date: 20140428
  Transmission Date: 20141212
  Serious: Yes (Hospitalization)
  Sender: FDA-Public Use
  Company Number: US-GLAXOSMITHKLINE-A1055380A

PATIENT
  Age: 73 Year
  Sex: Female

DRUGS (6)
  1. REQUIP [Suspect]
     Indication: PARKINSON^S DISEASE
     Dosage: 3MG FOUR TIMES PER DAY
     Route: 048
     Dates: start: 2001
  2. ROPINIROLE [Suspect]
     Indication: PARKINSON^S DISEASE
     Dosage: 3MG THREE TIMES PER DAY
     Route: 048
     Dates: start: 2011
  3. ROPINIROLE [Suspect]
     Indication: PARKINSON^S DISEASE
     Dosage: 3MG THREE TIMES PER DAY
     Route: 048
     Dates: start: 2011
  4. SYNTHROID [Concomitant]
  5. AMANTADINE [Concomitant]
  6. CARBIDOPA/LEVODOPA [Concomitant]

REACTIONS (6)
  - Depression [Recovered/Resolved]
  - Drug effect decreased [Recovered/Resolved]
  - Hip fracture [Recovered/Resolved]
  - Syncope [Recovered/Resolved]
  - Drug ineffective [Recovered/Resolved]
  - Malaise [Recovered/Resolved]
